FAERS Safety Report 15483829 (Version 1)
Quarter: 2018Q4

REPORT INFORMATION
  Report Type: Spontaneous
  Country: US (occurrence: US)
  Receive Date: 20181003
  Receipt Date: 20181003
  Transmission Date: 20190205
  Serious: Yes (Hospitalization)
  Sender: FDA-Public Use
  Company Number: None

PATIENT
  Age: 32 Year
  Sex: Male
  Weight: 101 kg

DRUGS (2)
  1. ISONIAZID. [Suspect]
     Active Substance: ISONIAZID
     Indication: LATENT TUBERCULOSIS
     Route: 048
     Dates: start: 20180406
  2. RIFAPENTINE [Suspect]
     Active Substance: RIFAPENTINE
     Indication: LATENT TUBERCULOSIS
     Route: 048
     Dates: start: 20180406

REACTIONS (8)
  - Dizziness [None]
  - Vomiting [None]
  - Nausea [None]
  - Urticaria [None]
  - Hypotension [None]
  - Flushing [None]
  - Pruritus [None]
  - Tachypnoea [None]

NARRATIVE: CASE EVENT DATE: 20180725
